FAERS Safety Report 13602253 (Version 4)
Quarter: 2018Q1

REPORT INFORMATION
  Report Type: Spontaneous
  Country: JP (occurrence: JP)
  Receive Date: 20170601
  Receipt Date: 20180102
  Transmission Date: 20180508
  Serious: Yes (Death, Other)
  Sender: FDA-Public Use
  Company Number: JP-009507513-1705JPN002612J

PATIENT
  Age: 68 Year
  Sex: Female
  Weight: 49 kg

DRUGS (11)
  1. AMLODIPINE [Concomitant]
     Active Substance: AMLODIPINE BESYLATE
     Indication: LUNG SQUAMOUS CELL CARCINOMA STAGE IV
     Dosage: 5 MG, QD
     Route: 048
  2. LOXOPROFEN [Concomitant]
     Active Substance: LOXOPROFEN
     Indication: LUNG SQUAMOUS CELL CARCINOMA STAGE IV
     Dosage: 180 MG, TID
     Route: 048
  3. DENOTAS [Concomitant]
     Active Substance: CALCIUM CARBONATE\CHOLECALCIFEROL\MAGNESIUM CARBONATE
     Indication: LUNG SQUAMOUS CELL CARCINOMA STAGE IV
     Dosage: 2 DF, QD
     Route: 048
  4. OXINORM (ORGOTEIN) [Concomitant]
     Active Substance: ORGOTEIN
     Indication: LUNG SQUAMOUS CELL CARCINOMA STAGE IV
     Dosage: 5 MG, BID
     Route: 048
  5. ASTOMIN [Concomitant]
     Active Substance: DIMEMORFAN
     Indication: LUNG SQUAMOUS CELL CARCINOMA STAGE IV
     Dosage: 30 MG, TID
     Route: 048
  6. KEYTRUDA [Suspect]
     Active Substance: PEMBROLIZUMAB
     Indication: LUNG SQUAMOUS CELL CARCINOMA STAGE IV
     Dosage: 200 MG, Q3W
     Route: 041
     Dates: start: 20170511, end: 20170511
  7. CARBOCISTEINE [Concomitant]
     Active Substance: CARBOCYSTEINE
     Indication: LUNG SQUAMOUS CELL CARCINOMA STAGE IV
     Dosage: 1500 MG, TID
     Route: 048
  8. WARFARIN [Concomitant]
     Active Substance: WARFARIN
     Indication: LUNG SQUAMOUS CELL CARCINOMA STAGE IV
     Dosage: 1.25 MG, QD
     Route: 048
  9. NEXIUM [Concomitant]
     Active Substance: ESOMEPRAZOLE MAGNESIUM
     Indication: LUNG SQUAMOUS CELL CARCINOMA STAGE IV
     Dosage: 20 MG, QD
     Route: 048
  10. REBAMIPIDE [Concomitant]
     Active Substance: REBAMIPIDE
     Indication: LUNG SQUAMOUS CELL CARCINOMA STAGE IV
     Dosage: 300 MG, TID
     Route: 048
  11. PITAVASTATIN CA MEEK [Concomitant]
     Indication: LUNG SQUAMOUS CELL CARCINOMA STAGE IV
     Dosage: 2 MG, QD
     Route: 048

REACTIONS (1)
  - Multiple organ dysfunction syndrome [Fatal]

NARRATIVE: CASE EVENT DATE: 20170521
